FAERS Safety Report 10569250 (Version 1)
Quarter: 2014Q4

REPORT INFORMATION
  Report Type: Report from Study
  Country: DE (occurrence: DE)
  Receive Date: 20141106
  Receipt Date: 20141106
  Transmission Date: 20150529
  Serious: Yes (Hospitalization)
  Sender: FDA-Public Use
  Company Number: DE-TEVA-520084GER

PATIENT
  Age: 51 Year
  Sex: Female
  Weight: 80 kg

DRUGS (9)
  1. GEMCITABINE [Suspect]
     Active Substance: GEMCITABINE\GEMCITABINE HYDROCHLORIDE
     Indication: BREAST CANCER FEMALE
     Dosage: 1528 MG/M2; D1/8 Q3W; LAST DOSE PRIOR TO THE SAE: 15-AUG-2014
     Route: 042
     Dates: start: 20140606
  2. MAGNESIUM [Concomitant]
     Active Substance: MAGNESIUM
     Dosage: 250 MILLIGRAM DAILY;
  3. HYDROCORTISONE. [Concomitant]
     Active Substance: HYDROCORTISONE
     Dosage: 15 MILLIGRAM DAILY; 10-5-0 MG
  4. MTX [Concomitant]
     Active Substance: METHOTREXATE SODIUM
  5. CALCIUM [Concomitant]
     Active Substance: CALCIUM
     Dosage: 50 MILLIGRAM DAILY;
  6. EPIRUBICIN [Concomitant]
     Active Substance: EPIRUBICIN
  7. L-THYROXIN + JOD [Concomitant]
     Dosage: 50 MICROG LEVOTHYROXINE PLUS 100 MICROG IODIDE
  8. FOLSAEURE [Concomitant]
     Active Substance: FOLIC ACID
  9. ABRAXANE [Suspect]
     Active Substance: PACLITAXEL
     Indication: BREAST CANCER FEMALE
     Dosage: 239 MG/M2; D1/8 Q3W; LAST DOSE PRIOR TO THE SAE: 15-AUG-2014
     Route: 042
     Dates: start: 20140606

REACTIONS (1)
  - Inflammation of wound [Not Recovered/Not Resolved]

NARRATIVE: CASE EVENT DATE: 20141028
